FAERS Safety Report 6204178-9 (Version None)
Quarter: 2009Q2

REPORT INFORMATION
  Report Type: 
  Country: None (occurrence: None)
  Receive Date: 20090527
  Receipt Date: 20090518
  Transmission Date: 20091009
  Serious: Yes (Death)
  Sender: FDA-Public Use
  Company Number: NL-MERCK-0905USA02742

PATIENT
  Age: 67 Year
  Sex: Male

DRUGS (3)
  1. DECADRON [Suspect]
     Indication: DERMATOMYOSITIS
     Route: 048
  2. SIROLIMUS [Concomitant]
     Route: 065
  3. GLOBULIN, IMMUNE [Concomitant]
     Route: 065

REACTIONS (1)
  - PROGRESSIVE MULTIFOCAL LEUKOENCEPHALOPATHY [None]
